FAERS Safety Report 5940357-3 (Version None)
Quarter: 2008Q4

REPORT INFORMATION
  Report Type: 
  Country: None (occurrence: None)
  Receive Date: 20081104
  Receipt Date: 20081028
  Transmission Date: 20090506
  Serious: Yes (Other)
  Sender: FDA-Public Use
  Company Number: NL-AVENTIS-200820253GDDC

PATIENT
  Age: 62 Year
  Sex: Female

DRUGS (4)
  1. ARAVA [Suspect]
     Indication: RHEUMATOID ARTHRITIS
     Route: 048
  2. ENBREL [Suspect]
     Indication: RHEUMATOID ARTHRITIS
     Route: 058
     Dates: start: 20070601, end: 20080919
  3. CELEBREX [Concomitant]
  4. REMICADE [Concomitant]
     Route: 042
     Dates: start: 20070108, end: 20070501

REACTIONS (1)
  - BREAST CANCER [None]
